FAERS Safety Report 11211586 (Version 3)
Quarter: 2015Q4

REPORT INFORMATION
  Report Type: Spontaneous
  Country: DE (occurrence: DE)
  Receive Date: 20150623
  Receipt Date: 20151201
  Transmission Date: 20160304
  Serious: Yes (Other)
  Sender: FDA-Public Use
  Company Number: DE-AMGEN-DEUSP2015043271

PATIENT
  Age: 59 Year
  Sex: Female

DRUGS (7)
  1. ENBREL [Suspect]
     Active Substance: ETANERCEPT
     Dosage: 50 MG, WEEKLY
     Route: 065
  2. TILIDINE [Concomitant]
     Active Substance: TILIDINE
     Dosage: UNK UNK, 2X/DAY
  3. ENBREL [Suspect]
     Active Substance: ETANERCEPT
     Indication: RHEUMATOID ARTHRITIS
     Dosage: 50 MG, WEEKLY
     Route: 065
     Dates: start: 20150417
  4. PRAMIPEXOLUM [Concomitant]
     Active Substance: PRAMIPEXOLE
  5. LYRICA [Concomitant]
     Active Substance: PREGABALIN
     Dosage: UNK, 2X/DAY
  6. IBUPROFENE [Concomitant]
     Active Substance: IBUPROFEN
     Dosage: UNK, 3X/DAY
  7. DOPADURA B [Concomitant]
     Dosage: UNK UNK, 3X/DAY

REACTIONS (5)
  - Nasopharyngitis [Unknown]
  - Drug effect incomplete [Not Recovered/Not Resolved]
  - Nausea [Not Recovered/Not Resolved]
  - Fibromyalgia [Not Recovered/Not Resolved]
  - Ligament rupture [Not Recovered/Not Resolved]

NARRATIVE: CASE EVENT DATE: 20150420
